FAERS Safety Report 7398769-X (Version None)
Quarter: 2011Q2

REPORT INFORMATION
  Report Type: 
  Country: None (occurrence: None)
  Receive Date: 20110401
  Receipt Date: 20110401
  Transmission Date: 20111010
  Serious: Yes (Hospitalization)
  Sender: FDA-Public Use
  Company Number: None

PATIENT
  Sex: Male
  Weight: 131 kg

DRUGS (2)
  1. BEVACIZUMAB (RHUMAB VEGF) [Suspect]
     Dosage: 558 MG
     Dates: end: 20110309
  2. FLUOROURACIL [Suspect]
     Dosage: 6285 MG
     Dates: end: 20110309

REACTIONS (4)
  - HYPOTENSION [None]
  - SYNCOPE [None]
  - HAEMODYNAMIC INSTABILITY [None]
  - MYOCARDIAL INFARCTION [None]
